FAERS Safety Report 13895329 (Version 1)
Quarter: 2017Q3

REPORT INFORMATION
  Report Type: Spontaneous
  Country: US (occurrence: US)
  Receive Date: 20170818
  Receipt Date: 20170818
  Transmission Date: 20171127
  Serious: Yes (Disabling, Other)
  Sender: FDA-Public Use
  Company Number: None

PATIENT
  Age: 65 Year
  Sex: Female
  Weight: 58.5 kg

DRUGS (8)
  1. PANTOPRAZOLE [Concomitant]
     Active Substance: PANTOPRAZOLE
  2. VITAMIN B12 [Concomitant]
     Active Substance: CYANOCOBALAMIN
  3. MULTI VITAMINS [Concomitant]
     Active Substance: VITAMINS
  4. BENICAR [Concomitant]
     Active Substance: OLMESARTAN MEDOXOMIL
  5. VITAMIN C [Concomitant]
     Active Substance: ASCORBIC ACID
  6. AMLODIPINE BESYLATE. [Concomitant]
     Active Substance: AMLODIPINE BESYLATE
  7. FISH OIL [Concomitant]
     Active Substance: FISH OIL
  8. RECLAST [Suspect]
     Active Substance: ZOLEDRONIC ACID
     Indication: OSTEOPOROSIS
     Dosage: ?          OTHER FREQUENCY:ONCE;?
     Route: 042
     Dates: start: 20170810, end: 20170810

REACTIONS (23)
  - Hypoaesthesia [None]
  - Feeling hot [None]
  - Pain in extremity [None]
  - Headache [None]
  - Nausea [None]
  - Swelling [None]
  - Asthenia [None]
  - Joint swelling [None]
  - Peripheral swelling [None]
  - Toothache [None]
  - Erythema [None]
  - Arthralgia [None]
  - Eye irritation [None]
  - Pain [None]
  - Pain in jaw [None]
  - Hypoaesthesia oral [None]
  - Diarrhoea [None]
  - Urine output decreased [None]
  - Neck pain [None]
  - Pyrexia [None]
  - Joint range of motion decreased [None]
  - Gait disturbance [None]
  - Constipation [None]

NARRATIVE: CASE EVENT DATE: 20170810
